FAERS Safety Report 7118314-3 (Version None)
Quarter: 2010Q4

REPORT INFORMATION
  Report Type: 
  Country: None (occurrence: None)
  Receive Date: 20101123
  Receipt Date: 20101109
  Transmission Date: 20110411
  Serious: Yes (Life-Threatening, Other)
  Sender: FDA-Public Use
  Company Number: IT-CELGENEUS-083-21880-10092679

PATIENT
  Sex: Male

DRUGS (13)
  1. REVLIMID [Suspect]
     Route: 048
     Dates: start: 20091025, end: 20091118
  2. REVLIMID [Suspect]
     Route: 048
  3. UROPROST [Concomitant]
     Route: 048
  4. DOBETIN [Concomitant]
     Route: 051
  5. FOLINA [Concomitant]
     Route: 048
  6. NATRILIX [Concomitant]
     Route: 048
  7. SOTALOL HCL [Concomitant]
     Route: 048
  8. NAPRILENE [Concomitant]
     Route: 048
  9. IBUSTRIN [Concomitant]
     Route: 048
  10. ZYLORIC [Concomitant]
     Route: 048
  11. XYZAL [Concomitant]
     Route: 047
     Dates: start: 20091112
  12. DELTACORTENE [Concomitant]
     Route: 048
     Dates: start: 20091112
  13. EPOGEN [Concomitant]
     Route: 065
     Dates: start: 20090301

REACTIONS (6)
  - DEEP VEIN THROMBOSIS [None]
  - ERYTHEMA [None]
  - NEUTROPENIA [None]
  - PRURITUS [None]
  - RASH [None]
  - RASH GENERALISED [None]
